FAERS Safety Report 12833356 (Version 3)
Quarter: 2017Q4

REPORT INFORMATION
  Report Type: Report from Study
  Country: JP (occurrence: JP)
  Receive Date: 20161010
  Receipt Date: 20171018
  Transmission Date: 20180320
  Serious: Yes (Hospitalization)
  Sender: FDA-Public Use
  Company Number: JP-ACTELION-A-CH2016-134809

PATIENT
  Age: 19 Year
  Sex: Female

DRUGS (25)
  1. EPOPROSTENOL ACT [Suspect]
     Active Substance: EPOPROSTENOL
     Dosage: 49.3 NG/KG, PER MIN
     Route: 042
     Dates: start: 20141108, end: 20141208
  2. EPOPROSTENOL ACT [Suspect]
     Active Substance: EPOPROSTENOL
     Dosage: 41.8 NG/KG, PER MIN
     Route: 042
     Dates: start: 20151216
  3. SPIRONOLACTONE. [Concomitant]
     Active Substance: SPIRONOLACTONE
     Indication: PRODUCT USED FOR UNKNOWN INDICATION
  4. LEVOCETIRIZINE HYDROCHLORIDE [Concomitant]
     Active Substance: LEVOCETIRIZINE HYDROCHLORIDE
     Indication: PRODUCT USED FOR UNKNOWN INDICATION
  5. LORMETAZEPAM [Concomitant]
     Active Substance: LORMETAZEPAM
     Indication: PRODUCT USED FOR UNKNOWN INDICATION
  6. LOPERAMIDE HYDROCHLORIDE. [Concomitant]
     Active Substance: LOPERAMIDE HYDROCHLORIDE
     Indication: PRODUCT USED FOR UNKNOWN INDICATION
  7. TRACLEER [Concomitant]
     Active Substance: BOSENTAN
     Indication: PULMONARY ARTERIAL HYPERTENSION
     Route: 048
  8. FUROSEMIDE. [Concomitant]
     Active Substance: FUROSEMIDE
     Indication: PRODUCT USED FOR UNKNOWN INDICATION
  9. EPOPROSTENOL ACT [Suspect]
     Active Substance: EPOPROSTENOL
     Dosage: 40.6 NG/KG, PER MIN
     Route: 042
     Dates: start: 20160120
  10. EPOPROSTENOL ACT [Suspect]
     Active Substance: EPOPROSTENOL
     Dosage: 41.1 NG/KG, PER MIN
     Route: 042
     Dates: start: 20160608
  11. PROPIVERINE HYDROCHLORIDE [Concomitant]
     Active Substance: PROPIVERINE HYDROCHLORIDE
     Indication: PRODUCT USED FOR UNKNOWN INDICATION
  12. EPOPROSTENOL ACT [Suspect]
     Active Substance: EPOPROSTENOL
     Dosage: 40.3 NG/KG, PER MIN
     Route: 042
     Dates: start: 20151118
  13. EPOPROSTENOL ACT [Suspect]
     Active Substance: EPOPROSTENOL
     Dosage: 40.3 NG/KG, PER MIN
     Route: 042
     Dates: start: 20160316
  14. EPOPROSTENOL ACT [Suspect]
     Active Substance: EPOPROSTENOL
     Dosage: 38.9 NG/KG, PER MIN
     Route: 042
     Dates: start: 20160713
  15. EPOPROSTENOL ACT [Suspect]
     Active Substance: EPOPROSTENOL
     Dosage: 39.1 NG/KG, PER MIN
     Route: 042
     Dates: start: 20160413
  16. EPOPROSTENOL ACT [Suspect]
     Active Substance: EPOPROSTENOL
     Dosage: 40.4 NG/KG, PER MIN
     Route: 042
     Dates: start: 20160810
  17. WARFARIN POTASSIUM [Concomitant]
     Active Substance: WARFARIN POTASSIUM
     Indication: THROMBOSIS PROPHYLAXIS
  18. EPOPROSTENOL ACT [Suspect]
     Active Substance: EPOPROSTENOL
     Dosage: 53.6 NG/KG, PER MIN
     Route: 042
     Dates: start: 20141008, end: 20141108
  19. EPOPROSTENOL ACT [Suspect]
     Active Substance: EPOPROSTENOL
     Dosage: 40.3 NG/KG, PER MIN
     Route: 042
     Dates: start: 20160914
  20. EPOPROSTENOL ACT [Suspect]
     Active Substance: EPOPROSTENOL
     Indication: PULMONARY ARTERIAL HYPERTENSION
     Dosage: 41.7 NG/KG, PER MIN
     Route: 042
     Dates: start: 20150608
  21. EPOPROSTENOL ACT [Suspect]
     Active Substance: EPOPROSTENOL
     Dosage: 45.0 NG/KG, PER MIN
     Route: 042
     Dates: start: 20141208, end: 20150108
  22. EPOPROSTENOL ACT [Suspect]
     Active Substance: EPOPROSTENOL
     Dosage: 45.7 NG/KG, PER MIN
     Route: 042
     Dates: start: 20150108, end: 20150408
  23. EPOPROSTENOL ACT [Suspect]
     Active Substance: EPOPROSTENOL
     Dosage: 42.9 NG/KG, PER MIN
     Route: 042
     Dates: start: 20150408, end: 20150608
  24. EPOPROSTENOL ACT [Suspect]
     Active Substance: EPOPROSTENOL
     Dosage: 39.5 NG/KG, PER MIN
     Route: 042
     Dates: start: 20161008
  25. OXYGEN. [Concomitant]
     Active Substance: OXYGEN
     Indication: PRODUCT USED FOR UNKNOWN INDICATION

REACTIONS (4)
  - Catheter management [Recovered/Resolved]
  - Catheter site infection [Recovered/Resolved]
  - Device occlusion [Unknown]
  - Gastritis [Not Recovered/Not Resolved]

NARRATIVE: CASE EVENT DATE: 20150614
